FAERS Safety Report 20731830 (Version 2)
Quarter: 2022Q2

REPORT INFORMATION
  Report Type: Spontaneous
  Country: US (occurrence: US)
  Receive Date: 20220420
  Receipt Date: 20220524
  Transmission Date: 20220721
  Serious: No
  Sender: FDA-Public Use
  Company Number: US-GILEAD-2022-0578378

PATIENT
  Age: 32 Year
  Sex: Female
  Weight: 63.946 kg

DRUGS (3)
  1. SOFOSBUVIR\VELPATASVIR [Suspect]
     Active Substance: SOFOSBUVIR\VELPATASVIR
     Indication: Product used for unknown indication
     Route: 065
  2. CANNABIS SATIVA SUBSP. INDICA TOP [Concomitant]
     Active Substance: CANNABIS SATIVA SUBSP. INDICA TOP
  3. SUBLOCADE [Concomitant]
     Active Substance: BUPRENORPHINE

REACTIONS (2)
  - Dermatitis contact [Recovered/Resolved]
  - Menstruation delayed [Recovered/Resolved]

NARRATIVE: CASE EVENT DATE: 20220418
